FAERS Safety Report 6590802-8 (Version None)
Quarter: 2010Q1

REPORT INFORMATION
  Report Type: 
  Country: None (occurrence: None)
  Receive Date: 20100219
  Receipt Date: 20100209
  Transmission Date: 20100710
  Serious: Yes (Other)
  Sender: FDA-Public Use
  Company Number: US-PFIZER INC-2010018117

PATIENT
  Sex: Male
  Weight: 103.86 kg

DRUGS (2)
  1. SUTENT [Suspect]
     Indication: RENAL CELL CARCINOMA
     Dosage: 50 MG, 1X/DAY
     Route: 048
     Dates: start: 20091001
  2. AVANDIA [Concomitant]
     Dosage: 4 MG, DAILY

REACTIONS (2)
  - HYPERTENSION [None]
  - LOSS OF CONSCIOUSNESS [None]
